FAERS Safety Report 12169850 (Version 2)
Quarter: 2016Q2

REPORT INFORMATION
  Report Type: Other
  Country: FR (occurrence: FR)
  Receive Date: 20160310
  Receipt Date: 20160407
  Transmission Date: 20160815
  Serious: Yes (Hospitalization)
  Sender: FDA-Public Use
  Company Number: FR-SEATTLE GENETICS-2016SGN00329

PATIENT

DRUGS (1)
  1. ADCETRIS [Suspect]
     Active Substance: BRENTUXIMAB VEDOTIN
     Indication: HODGKIN^S DISEASE RECURRENT
     Dosage: 84.2 MG, UNK
     Route: 042
     Dates: start: 20160211, end: 20160211

REACTIONS (4)
  - Asthmatic crisis [Recovered/Resolved]
  - Dyspnoea [Recovered/Resolved]
  - Laryngeal discomfort [Recovered/Resolved]
  - Cough [Recovered/Resolved]

NARRATIVE: CASE EVENT DATE: 20160211
